FAERS Safety Report 7637356-2 (Version None)
Quarter: 2011Q3

REPORT INFORMATION
  Report Type: 
  Country: None (occurrence: None)
  Receive Date: 20110726
  Receipt Date: 20110721
  Transmission Date: 20111222
  Serious: No
  Sender: FDA-Public Use
  Company Number: US-PFIZER INC-2011166846

PATIENT
  Sex: Female
  Weight: 96.599 kg

DRUGS (2)
  1. TRAZODONE HCL [Suspect]
     Dosage: UNK
  2. TRAZODONE HCL [Suspect]
     Indication: DEPRESSION
     Dosage: 300 MG, DAILY

REACTIONS (1)
  - PRURITUS GENERALISED [None]
